FAERS Safety Report 21057163 (Version 2)
Quarter: 2022Q3

REPORT INFORMATION
  Report Type: Spontaneous
  Country: IT (occurrence: IT)
  Receive Date: 20220708
  Receipt Date: 20220712
  Transmission Date: 20221027
  Serious: Yes (Hospitalization)
  Sender: FDA-Public Use
  Company Number: IT-MYLANLABS-2022M1048985

PATIENT
  Age: 84 Year
  Sex: Male
  Weight: 58 kg

DRUGS (2)
  1. CREON [Suspect]
     Active Substance: PANCRELIPASE AMYLASE\PANCRELIPASE LIPASE\PANCRELIPASE PROTEASE
     Indication: Pancreatic failure
     Dosage: UNK
     Route: 048
  2. MESALAMINE [Concomitant]
     Active Substance: MESALAMINE
     Indication: Pancreatic failure
     Dosage: UNK

REACTIONS (6)
  - Urosepsis [Unknown]
  - Hypokalaemia [Unknown]
  - Diarrhoea [Recovered/Resolved]
  - Weight decreased [Recovered/Resolved]
  - Drug ineffective [Unknown]
  - Haemoglobin decreased [Unknown]

NARRATIVE: CASE EVENT DATE: 20211101
